FAERS Safety Report 4811788-X (Version None)
Quarter: 2005Q4

REPORT INFORMATION
  Report Type: 
  Country: None (occurrence: None)
  Receive Date: 20051027
  Receipt Date: 20051027
  Transmission Date: 20060501
  Serious: Yes (Life-Threatening)
  Sender: FDA-Public Use
  Company Number: None

PATIENT
  Age: 58 Year
  Sex: Male
  Weight: 89 kg

DRUGS (25)
  1. LISINOPRIL [Suspect]
     Indication: HYPERTENSION
     Dosage: 40MG,40MG DAI, ORAL
     Route: 048
     Dates: start: 20050912
  2. FLUTICAS 500/SALMETEROL 50 INHL DISK 60 [Concomitant]
  3. LISINOPRIL [Concomitant]
  4. PRAMIPEXOLE DIHYDROCHLORIDE [Concomitant]
  5. ALBUTEROL SO4 [Concomitant]
  6. IPRATROPIUM BROMIDE [Concomitant]
  7. AZITHROMYCIN [Concomitant]
  8. ALBUTEROL [Concomitant]
  9. NEOMYCIN 3.5MG/POLYMYXIN/HC [Concomitant]
  10. PREDNISONE [Concomitant]
  11. TRAMADOL HCL [Concomitant]
  12. CEFUROXIME AXETIL [Concomitant]
  13. HYDROCHLOROTHIAZIDE [Concomitant]
  14. ALPRAZOLAM [Concomitant]
  15. CITALOPRAM HYDROBROMIDE [Concomitant]
  16. BUPROPION HCL [Concomitant]
  17. SIMVASTATIN [Concomitant]
  18. GEMFIBROZIL [Concomitant]
  19. RANITIDINE HCL [Concomitant]
  20. TERAZOSIN HCL [Concomitant]
  21. FELODIPINE [Concomitant]
  22. LEFLUNOMIDE [Concomitant]
  23. ALENDRONATE [Concomitant]
  24. ALBUTEROL SULFATE AND IPRATROPIUM BROMIDE [Concomitant]
  25. CALCIUM CARBONATE [Concomitant]

REACTIONS (2)
  - ANGIONEUROTIC OEDEMA [None]
  - COUGH [None]
